FAERS Safety Report 4982731-8 (Version None)
Quarter: 2006Q2

REPORT INFORMATION
  Report Type: 
  Country: None (occurrence: None)
  Receive Date: 20060425
  Receipt Date: 20051215
  Transmission Date: 20061013
  Serious: Yes (Death)
  Sender: FDA-Public Use
  Company Number: US-MERCK-0512USA02322

PATIENT
  Age: 47 Year
  Sex: Male

DRUGS (2)
  1. VIOXX [Suspect]
     Indication: PAIN IN EXTREMITY
     Route: 048
     Dates: start: 20040211
  2. VIOXX [Suspect]
     Indication: CHEST PAIN
     Route: 048
     Dates: start: 20040211

REACTIONS (1)
  - ARTERIOSCLEROSIS [None]
